FAERS Safety Report 24237055 (Version 1)
Quarter: 2024Q3

REPORT INFORMATION
  Report Type: Spontaneous
  Country: JP (occurrence: JP)
  Receive Date: 20240822
  Receipt Date: 20240822
  Transmission Date: 20241017
  Serious: Yes (Death)
  Sender: RANBAXY
  Company Number: JP-SUN PHARMACEUTICAL INDUSTRIES LTD-2024R1-463853

PATIENT
  Age: 78 Year
  Sex: Female

DRUGS (2)
  1. DEXAMETHASONE [Suspect]
     Active Substance: DEXAMETHASONE
     Indication: Primary amyloidosis
     Dosage: 20 MILLIGRAM
     Route: 048
  2. MELPHALAN [Suspect]
     Active Substance: MELPHALAN
     Indication: Primary amyloidosis
     Dosage: 6 MILLIGRAM(4 DAYS EVERY 3 WEEKS)
     Route: 048

REACTIONS (1)
  - Condition aggravated [Fatal]
